FAERS Safety Report 20429917 (Version 1)
Quarter: 2022Q1

REPORT INFORMATION
  Report Type: Report from Study
  Country: US (occurrence: US)
  Receive Date: 20220204
  Receipt Date: 20220204
  Transmission Date: 20220423
  Serious: Yes (Death, Life-Threatening, Hospitalization, Other)
  Sender: FDA-Public Use
  Company Number: None

PATIENT

DRUGS (5)
  1. ONCASPAR [Suspect]
     Active Substance: PEGASPARGASE
     Indication: B precursor type acute leukaemia
     Dosage: 3750 IU, ONE DOSE
     Route: 042
     Dates: start: 20181210, end: 20181210
  2. CYTARABINE [Suspect]
     Active Substance: CYTARABINE
     Indication: B precursor type acute leukaemia
     Dosage: 70 MG, ONE DOSE
     Route: 065
     Dates: start: 20181205, end: 20181205
  3. DAUNORUBICIN [Suspect]
     Active Substance: DAUNORUBICIN
     Indication: B precursor type acute leukaemia
     Dosage: 115 MG, UNK
     Route: 042
     Dates: start: 20181205, end: 20181212
  4. METHOTREXATE [Suspect]
     Active Substance: METHOTREXATE
     Indication: B precursor type acute leukaemia
     Dosage: 15 MG, ONE DOSE
     Route: 042
     Dates: start: 20181213, end: 20181213
  5. VINCRISTINE [Suspect]
     Active Substance: VINCRISTINE
     Indication: B precursor type acute leukaemia
     Dosage: 4 MG, EVERY 1 WEEK
     Route: 042
     Dates: start: 20181205, end: 20181212

REACTIONS (12)
  - Ischaemic cerebral infarction [Fatal]
  - Escherichia sepsis [Unknown]
  - Tumour lysis syndrome [Recovered/Resolved]
  - Acute kidney injury [Recovering/Resolving]
  - Acute lung injury [Unknown]
  - Cerebral haemorrhage [Unknown]
  - Subarachnoid haemorrhage [Unknown]
  - Escherichia bacteraemia [Unknown]
  - Pancytopenia [Unknown]
  - Epistaxis [Unknown]
  - Acute respiratory distress syndrome [Unknown]
  - Hypotension [Unknown]

NARRATIVE: CASE EVENT DATE: 20181201
